FAERS Safety Report 24927319 (Version 1)
Quarter: 2025Q1

REPORT INFORMATION
  Report Type: Spontaneous
  Country: CA (occurrence: None)
  Receive Date: 20250205
  Receipt Date: 20250205
  Transmission Date: 20250409
  Serious: Yes (Other)
  Sender: ORION
  Company Number: CA-PFIZER INC-202500021773

PATIENT
  Age: 38 Year
  Sex: Female

DRUGS (1)
  1. METHOTREXATE [Suspect]
     Active Substance: METHOTREXATE
     Indication: Crohn^s disease
     Dates: start: 201811, end: 202003

REACTIONS (6)
  - Small intestinal obstruction [Unknown]
  - Pulmonary embolism [Unknown]
  - Product use in unapproved indication [Unknown]
  - Crohn^s disease [Unknown]
  - Nausea [Unknown]
  - Vomiting [Unknown]

NARRATIVE: CASE EVENT DATE: 20181101
